FAERS Safety Report 21606382 (Version 4)
Quarter: 2022Q4

REPORT INFORMATION
  Report Type: Spontaneous
  Country: PL (occurrence: PL)
  Receive Date: 20221117
  Receipt Date: 20221223
  Transmission Date: 20230112
  Serious: Yes (Hospitalization, Other)
  Sender: FDA-Public Use
  Company Number: PL-SYNOPTIS-038-L-001

PATIENT
  Age: 43 Year
  Sex: Male

DRUGS (41)
  1. ERTAPENEM [Suspect]
     Active Substance: ERTAPENEM
     Indication: Urinary tract infection
     Dosage: 1000 MILLIGRAM, ONCE A DAY
     Route: 042
  2. ERTAPENEM [Suspect]
     Active Substance: ERTAPENEM
     Indication: Enterobacter infection
  3. RITONAVIR [Suspect]
     Active Substance: RITONAVIR
     Indication: HIV infection
     Dosage: 200 MILLIGRAM, ONCE A DAY(100 MG, BID )
     Route: 065
  4. DARUNAVIR [Suspect]
     Active Substance: DARUNAVIR
     Indication: HIV infection
     Dosage: 1200 MILLIGRAM, ONCE A DAY(600 MG, BID )
     Route: 065
  5. ABACAVIR\LAMIVUDINE [Suspect]
     Active Substance: ABACAVIR\LAMIVUDINE
     Indication: HIV infection
     Dosage: UNK, ONCE A DAY
     Route: 065
     Dates: start: 201112
  6. CLINDAMYCIN [Suspect]
     Active Substance: CLINDAMYCIN
     Indication: Evidence based treatment
     Dosage: 1800 MILLIGRAM, ONCE A DAY(600 MILLIGRAM, TID; THREE TIMES A DAY )
     Route: 065
  7. CLINDAMYCIN [Suspect]
     Active Substance: CLINDAMYCIN
     Indication: Toxoplasmosis
  8. CLARITHROMYCIN [Suspect]
     Active Substance: CLARITHROMYCIN
     Indication: Tuberculosis
     Dosage: 1000 MILLIGRAM, ONCE A DAY(500 MG, BID )
     Route: 048
  9. CLARITHROMYCIN [Suspect]
     Active Substance: CLARITHROMYCIN
     Indication: Tuberculosis
     Dosage: 250 MILLIGRAM
     Route: 048
  10. CLOFAZIMINE [Suspect]
     Active Substance: CLOFAZIMINE
     Indication: Tuberculosis
     Dosage: 200 MILLIGRAM, ONCE A DAY(100 MG, BID )
     Route: 048
  11. COTRIMOXAZOLE [Suspect]
     Active Substance: SULFAMETHOXAZOLE\TRIMETHOPRIM
     Indication: Antifungal prophylaxis
     Dosage: 960 MILLIGRAM, EVERY OTHER DAY
     Route: 065
  12. EFAVIRENZ [Suspect]
     Active Substance: EFAVIRENZ
     Indication: HIV infection
     Dosage: 800 MILLIGRAM, ONCE A DAY
     Route: 065
     Dates: start: 2011
  13. ETHIONAMIDE [Suspect]
     Active Substance: ETHIONAMIDE
     Indication: Tuberculosis
     Dosage: 1500 MILLIGRAM, ONCE A DAY(750 MG, BID )
     Route: 048
  14. FLUCONAZOLE [Suspect]
     Active Substance: FLUCONAZOLE
     Indication: Candida infection
     Dosage: 100 MILLIGRAM, TWO TIMES A DAY(200 MILIGRAM ONCE A DAY)
     Route: 048
  15. FLUCONAZOLE [Suspect]
     Active Substance: FLUCONAZOLE
     Indication: Candida infection
     Dosage: 100 MILLIGRAM, ONCE A DAY
     Route: 048
  16. FLUCONAZOLE [Suspect]
     Active Substance: FLUCONAZOLE
     Indication: Candida infection
     Dosage: 150 MILLIGRAM
     Route: 048
  17. FLUCONAZOLE [Suspect]
     Active Substance: FLUCONAZOLE
     Indication: Candida infection
     Dosage: 200 MILLIGRAM
     Route: 048
  18. FOSFOMYCIN [Suspect]
     Active Substance: FOSFOMYCIN
     Indication: Urinary tract inflammation
     Dosage: UNK(INTERMITTENTLY)
     Route: 065
  19. FOSFOMYCIN [Suspect]
     Active Substance: FOSFOMYCIN
     Indication: Enterobacter infection
  20. ISONIAZID [Suspect]
     Active Substance: ISONIAZID
     Indication: Tuberculosis
     Dosage: UNK
     Route: 065
     Dates: start: 201104
  21. LEVOFLOXACIN [Suspect]
     Active Substance: LEVOFLOXACIN
     Indication: Tuberculosis
     Dosage: 500 MILLIGRAM, TWO TIMES A DAY
     Route: 048
  22. LEVOFLOXACIN [Suspect]
     Active Substance: LEVOFLOXACIN
     Indication: Tuberculosis
     Dosage: 250 MILLIGRAM, EVERY OTHER DAY
     Route: 048
  23. LOPINAVIR\RITONAVIR [Suspect]
     Active Substance: LOPINAVIR\RITONAVIR
     Indication: HIV infection
     Dosage: 4 DOSAGE FORM, ONCE A DAY(2 DF, BID )
     Route: 065
  24. MEROPENEM [Suspect]
     Active Substance: MEROPENEM
     Indication: Urinary tract infection
     Dosage: 500 MILLIGRAM, FOUR TIMES/DAY
     Route: 042
  25. MEROPENEM [Suspect]
     Active Substance: MEROPENEM
     Dosage: 200 MILLIGRAM, ONCE A DAY
     Route: 042
  26. MEROPENEM [Suspect]
     Active Substance: MEROPENEM
     Indication: Urinary tract infection
     Dosage: 1000 MILLIGRAM, TWO TIMES A DAY(2000  MG ONCE A DAY)
     Route: 042
  27. MEROPENEM [Suspect]
     Active Substance: MEROPENEM
     Indication: Enterobacter infection
  28. PYRAZINAMIDE [Suspect]
     Active Substance: PYRAZINAMIDE
     Indication: Tuberculosis
     Dosage: UNK
     Route: 065
     Dates: start: 201104
  29. RALTEGRAVIR POTASSIUM [Suspect]
     Active Substance: RALTEGRAVIR POTASSIUM
     Indication: HIV infection
     Dosage: 800 MILLIGRAM, ONCE A DAY(400 MG, BID )
     Route: 065
     Dates: start: 201112
  30. RIFAMPIN [Suspect]
     Active Substance: RIFAMPIN
     Indication: Tuberculosis
     Dosage: UNK
     Route: 065
     Dates: start: 201104
  31. STREPTOMYCIN [Suspect]
     Active Substance: STREPTOMYCIN SULFATE
     Indication: Tuberculosis
     Dosage: 1 GRAM, ONCE A DAY
     Route: 030
  32. TRUVADA [Suspect]
     Active Substance: EMTRICITABINE\TENOFOVIR DISOPROXIL FUMARATE
     Indication: HIV infection
     Dosage: 1 DOSAGE FORM, ONCE A DAY
     Route: 065
  33. PYRIMETHAMINE [Suspect]
     Active Substance: PYRIMETHAMINE
     Indication: Evidence based treatment
     Dosage: 50 MILLIGRAM
     Route: 048
  34. PYRIMETHAMINE [Suspect]
     Active Substance: PYRIMETHAMINE
     Indication: Toxoplasmosis
  35. OSELTAMIVIR [Concomitant]
     Active Substance: OSELTAMIVIR
     Indication: H1N1 influenza
     Dosage: UNK(2 X 75 MG )
     Route: 048
  36. ETHAMBUTOL [Concomitant]
     Active Substance: ETHAMBUTOL HYDROCHLORIDE
     Indication: Tuberculosis
     Dosage: UNK
     Route: 065
     Dates: start: 201104
  37. ALBUMIN HUMAN [Concomitant]
     Active Substance: ALBUMIN HUMAN
     Indication: Product used for unknown indication
     Dosage: UNK
     Route: 065
  38. VORICONAZOLE [Concomitant]
     Active Substance: VORICONAZOLE
     Indication: Candida infection
     Dosage: 0.4 MILLIGRAM(0.2MG BID)
     Route: 048
  39. VORICONAZOLE [Concomitant]
     Active Substance: VORICONAZOLE
     Dosage: 0.8 MILLIGRAM((0.4MG BID))
     Route: 048
  40. GANCICLOVIR [Concomitant]
     Active Substance: GANCICLOVIR
     Indication: Cytomegalovirus chorioretinitis
     Dosage: 500 MILLIGRAM, ONCE A DAY(250 MILLIGRAM, BID)
     Route: 042
  41. EFAVIRENZ [Concomitant]
     Active Substance: EFAVIRENZ
     Indication: Product used for unknown indication
     Dosage: UNK
     Route: 065

REACTIONS (17)
  - Hepatitis cholestatic [Unknown]
  - Pancreatitis [Unknown]
  - Clostridium difficile colitis [Unknown]
  - Neutropenia [Unknown]
  - Conductive deafness [Unknown]
  - Lymphopenia [Unknown]
  - Urinary tract infection [Unknown]
  - Pathogen resistance [Unknown]
  - Nausea [Unknown]
  - Myalgia [Unknown]
  - Drug resistance [Unknown]
  - Neuropsychiatric symptoms [Unknown]
  - Diarrhoea [Unknown]
  - Drug ineffective [Unknown]
  - Mental disorder [Unknown]
  - Blood bilirubin increased [Unknown]
  - Urinary tract inflammation [Unknown]
